FAERS Safety Report 24802146 (Version 1)
Quarter: 2025Q1

REPORT INFORMATION
  Report Type: Spontaneous
  Country: FR (occurrence: FR)
  Receive Date: 20250103
  Receipt Date: 20250103
  Transmission Date: 20250408
  Serious: Yes (Hospitalization, Other)
  Sender: CELLTRION
  Company Number: None

PATIENT

DRUGS (8)
  1. INFLIXIMAB [Suspect]
     Active Substance: INFLIXIMAB
     Indication: Psoriatic arthropathy
     Route: 058
     Dates: start: 20140321
  2. RAMIPRIL [Concomitant]
     Active Substance: RAMIPRIL
  3. LANSOPRAZOLE [Concomitant]
     Active Substance: LANSOPRAZOLE
  4. DIAZEPAM [Concomitant]
     Active Substance: DIAZEPAM
  5. BRINTELLIX [Concomitant]
     Active Substance: VORTIOXETINE HYDROBROMIDE
  6. ZOPICLONE [Concomitant]
     Active Substance: ZOPICLONE
  7. BISOPROLOL [Concomitant]
     Active Substance: BISOPROLOL
  8. POTASSIUM CHLORIDE [Concomitant]
     Active Substance: POTASSIUM CHLORIDE

REACTIONS (3)
  - Myocarditis [Recovering/Resolving]
  - Chest pain [Recovered/Resolved]
  - Intentional product use issue [Unknown]

NARRATIVE: CASE EVENT DATE: 20240501
